FAERS Safety Report 16254039 (Version 1)
Quarter: 2019Q2

REPORT INFORMATION
  Report Type: Spontaneous
  Country: US (occurrence: US)
  Receive Date: 20190430
  Receipt Date: 20190430
  Transmission Date: 20190711
  Serious: Yes (Other)
  Sender: FDA-Public Use
  Company Number: PHEH2019US017512

PATIENT
  Age: 83 Year
  Sex: Male
  Weight: 68.48 kg

DRUGS (1)
  1. ENTRESTO [Suspect]
     Active Substance: SACUBITRIL\VALSARTAN
     Indication: LEFT VENTRICULAR FAILURE
     Dosage: 50 MG, BID
     Route: 048
     Dates: start: 20190413, end: 20190422

REACTIONS (2)
  - Headache [Unknown]
  - Hallucination [Unknown]

NARRATIVE: CASE EVENT DATE: 20190422
